FAERS Safety Report 7209404-5 (Version None)
Quarter: 2011Q1

REPORT INFORMATION
  Report Type: 
  Country: None (occurrence: None)
  Receive Date: 20110104
  Receipt Date: 20101227
  Transmission Date: 20110831
  Serious: Yes (Hospitalization)
  Sender: FDA-Public Use
  Company Number: US-AMGEN-USASP2010011890

PATIENT

DRUGS (1)
  1. ENBREL [Suspect]
     Indication: PSORIATIC ARTHROPATHY
     Dosage: 50 MG, QWK
     Dates: start: 20100401

REACTIONS (6)
  - NASOPHARYNGITIS [None]
  - PSORIATIC ARTHROPATHY [None]
  - LYMPHADENOPATHY [None]
  - PNEUMONIA [None]
  - PARANASAL SINUS HYPERSECRETION [None]
  - BRONCHITIS [None]
